FAERS Safety Report 9541708 (Version 1)
Quarter: 2013Q2

REPORT INFORMATION
  Report Type: Spontaneous
  Country: US (occurrence: None)
  Receive Date: 20130524
  Receipt Date: 20130524
  Transmission Date: 20140414
  Serious: No
  Sender: FDA-Public Use
  Company Number: PHEH2012US023877

PATIENT
  Age: 46 Year
  Sex: Female
  Weight: 49.9 kg

DRUGS (4)
  1. GILENYA [Suspect]
     Indication: MULTIPLE SCLEROSIS
     Route: 048
  2. CELEBREX (CELECOXIB) CAPSULE [Concomitant]
  3. CALCIUM (CALCIUM) TABLET [Concomitant]
  4. VITAMIN D (ERGOCALCIFEROL) TABLET [Concomitant]

REACTIONS (1)
  - Constipation [None]
